FAERS Safety Report 8632413 (Version 2)
Quarter: 2013Q2

REPORT INFORMATION
  Report Type: Spontaneous
  Country: FR (occurrence: FR)
  Receive Date: 20120625
  Receipt Date: 20130621
  Transmission Date: 20140414
  Serious: Yes (Hospitalization, Other)
  Sender: FDA-Public Use
  Company Number: PHHY2012FR052364

PATIENT
  Age: 75 Year
  Sex: Male

DRUGS (4)
  1. TASIGNA [Suspect]
     Indication: CHRONIC MYELOID LEUKAEMIA
     Dosage: 400 MG, BID
     Route: 048
     Dates: start: 200802
  2. MICARDIS [Concomitant]
     Dosage: 80 MG
  3. ESOMEPRAZOLE [Concomitant]
     Dosage: 1 DF, QD
  4. LOVENOX [Concomitant]
     Dosage: 4000 IU
     Route: 058
     Dates: end: 20130530

REACTIONS (10)
  - Arterial disorder [Recovering/Resolving]
  - Ischaemia [Unknown]
  - Arterial stenosis [Not Recovered/Not Resolved]
  - Foot deformity [Unknown]
  - Necrosis [Unknown]
  - Abscess [Unknown]
  - Blister [Unknown]
  - Impaired healing [Unknown]
  - Blood cholesterol decreased [Unknown]
  - Glycosylated haemoglobin decreased [Unknown]
